FAERS Safety Report 8214565-5 (Version None)
Quarter: 2012Q1

REPORT INFORMATION
  Report Type: 
  Country: None (occurrence: None)
  Receive Date: 20120316
  Receipt Date: 20120307
  Transmission Date: 20120608
  Serious: Yes (Hospitalization)
  Sender: FDA-Public Use
  Company Number: US-JNJFOC-20120305173

PATIENT
  Sex: Female
  Weight: 43.09 kg

DRUGS (8)
  1. REMICADE [Suspect]
     Indication: JUVENILE ARTHRITIS
     Dosage: STARTING DOSES
     Route: 042
     Dates: start: 20120101
  2. REMICADE [Suspect]
     Route: 042
     Dates: start: 20100101, end: 20100101
  3. REMICADE [Suspect]
     Indication: CROHN'S DISEASE
     Route: 042
     Dates: start: 20120301
  4. REMICADE [Suspect]
     Route: 042
     Dates: start: 20100101, end: 20100101
  5. REMICADE [Suspect]
     Route: 042
     Dates: start: 20120301
  6. REMICADE [Suspect]
     Dosage: STARTING DOSES
     Route: 042
     Dates: start: 20120101
  7. SOLU-MEDROL [Concomitant]
     Indication: PREMEDICATION
     Route: 065
  8. METHOTREXATE [Concomitant]
     Indication: PREMEDICATION
     Route: 065

REACTIONS (4)
  - TREMOR [None]
  - ARTHRALGIA [None]
  - DRUG INEFFECTIVE [None]
  - ASTHENIA [None]
